FAERS Safety Report 6233184-3 (Version None)
Quarter: 2009Q2

REPORT INFORMATION
  Report Type: 
  Country: None (occurrence: None)
  Receive Date: 20090617
  Receipt Date: 20090612
  Transmission Date: 20091009
  Serious: No
  Sender: FDA-Public Use
  Company Number: US-B.I. PHARMACEUTICALS,INC./RIDGEFIELD-2009-BP-07287BP

PATIENT
  Age: 73 Year
  Sex: Male

DRUGS (2)
  1. FLOMAX [Suspect]
     Indication: PROSTATE CANCER
     Dosage: .4MG
     Route: 048
     Dates: start: 20040101, end: 20090501
  2. VITAMIN [Concomitant]

REACTIONS (2)
  - POLLAKIURIA [None]
  - SEMEN VOLUME DECREASED [None]
